FAERS Safety Report 8392116 (Version 2)
Quarter: 2014Q4

REPORT INFORMATION
  Report Type: Spontaneous
  Country: US (occurrence: US)
  Receive Date: 20120206
  Receipt Date: 20141104
  Transmission Date: 20150529
  Serious: Yes (Hospitalization, Other)
  Sender: FDA-Public Use
  Company Number: US-GLAXOSMITHKLINE-B0723111A

PATIENT
  Sex: Female
  Weight: 126 kg

DRUGS (9)
  1. SYNTHROID [Concomitant]
     Active Substance: LEVOTHYROXINE SODIUM
  2. AVANDIA [Suspect]
     Active Substance: ROSIGLITAZONE MALEATE
     Indication: DIABETES MELLITUS
     Dosage: 4 MG, UNK
     Route: 048
     Dates: start: 20001102, end: 20070430
  3. VOLTAREN [Concomitant]
     Active Substance: DICLOFENAC SODIUM
  4. FOSAMAX [Concomitant]
     Active Substance: ALENDRONATE SODIUM
  5. DIOVAN [Concomitant]
     Active Substance: VALSARTAN
  6. LISINOPRIL. [Concomitant]
     Active Substance: LISINOPRIL
  7. AVANDAMET [Suspect]
     Active Substance: METFORMIN HYDROCHLORIDE\ROSIGLITAZONE MALEATE
     Indication: DIABETES MELLITUS
     Dosage: UNK
     Route: 048
     Dates: start: 20060907, end: 20070718
  8. VERAPAMIL [Concomitant]
     Active Substance: VERAPAMIL HYDROCHLORIDE
  9. GLUCOPHAGE [Concomitant]
     Active Substance: METFORMIN HYDROCHLORIDE

REACTIONS (5)
  - Myocardial infarction [Not Recovered/Not Resolved]
  - Coronary artery disease [Unknown]
  - Pleural effusion [Unknown]
  - Pulmonary oedema [Unknown]
  - Cardiac failure congestive [Unknown]
